FAERS Safety Report 12564359 (Version 1)
Quarter: 2016Q3

REPORT INFORMATION
  Report Type: Spontaneous
  Country: US (occurrence: None)
  Receive Date: 20160715
  Receipt Date: 20160715
  Transmission Date: 20161109
  Serious: Yes (Other)
  Sender: FDA-Public Use
  Company Number: None

PATIENT
  Age: 56 Year
  Sex: Female
  Weight: 74.84 kg

DRUGS (13)
  1. CLONAZEPAM. [Concomitant]
     Active Substance: CLONAZEPAM
  2. NITROSTAT [Concomitant]
     Active Substance: NITROGLYCERIN
  3. VITAMIN D3 [Concomitant]
     Active Substance: CHOLECALCIFEROL
  4. CALCIUM [Concomitant]
     Active Substance: CALCIUM
  5. ACETAMINOPHEN\HYDROCODONE BITARTRATE [Concomitant]
     Active Substance: ACETAMINOPHEN\HYDROCODONE BITARTRATE
  6. COPAXONE [Suspect]
     Active Substance: GLATIRAMER ACETATE
     Indication: MULTIPLE SCLEROSIS
     Dosage: 12 INJECTION(S)  3 TIMES PER WEEK GIVEN INTO/UNDER THE SKIN
     Dates: start: 20160704, end: 20160711
  7. ROSUVASTATIN. [Concomitant]
     Active Substance: ROSUVASTATIN
  8. TOPIRAMATE. [Concomitant]
     Active Substance: TOPIRAMATE
  9. ASPIRIN. [Concomitant]
     Active Substance: ASPIRIN
  10. PANTOPRAZOLE [Concomitant]
     Active Substance: PANTOPRAZOLE SODIUM
  11. DIAZEPAM. [Concomitant]
     Active Substance: DIAZEPAM
  12. PROPRANOLOL [Concomitant]
     Active Substance: PROPRANOLOL\PROPRANOLOL HYDROCHLORIDE
  13. SUPER B COMPLEX W/FOLIC ACID + VITAMIN C [Concomitant]

REACTIONS (4)
  - Injection site urticaria [None]
  - Back pain [None]
  - Pain in extremity [None]
  - Product quality issue [None]

NARRATIVE: CASE EVENT DATE: 20160704
